FAERS Safety Report 5443948-1 (Version None)
Quarter: 2007Q3

REPORT INFORMATION
  Report Type: 
  Country: None (occurrence: None)
  Receive Date: 20070905
  Receipt Date: 20070824
  Transmission Date: 20080115
  Serious: Yes (Other)
  Sender: FDA-Public Use
  Company Number: GB-PFIZER INC-2007073132

PATIENT
  Sex: Female

DRUGS (1)
  1. CHAMPIX [Suspect]
     Indication: SMOKING CESSATION THERAPY
     Route: 048

REACTIONS (6)
  - ABNORMAL DREAMS [None]
  - FATIGUE [None]
  - GLUCOSE URINE [None]
  - HAEMATURIA [None]
  - URINARY TRACT INFECTION [None]
  - VISION BLURRED [None]
